FAERS Safety Report 20012821 (Version 1)
Quarter: 2021Q4

REPORT INFORMATION
  Report Type: Spontaneous
  Country: CN (occurrence: CN)
  Receive Date: 20211029
  Receipt Date: 20211029
  Transmission Date: 20220304
  Serious: Yes (Other)
  Sender: FDA-Public Use
  Company Number: CN-BAYER-2021A240103

PATIENT
  Age: 67 Year
  Sex: Male

DRUGS (6)
  1. STIVARGA [Suspect]
     Active Substance: REGORAFENIB
     Indication: Colorectal cancer
     Dosage: 80 MG, QD
     Route: 048
     Dates: start: 20190622, end: 2019
  2. STIVARGA [Suspect]
     Active Substance: REGORAFENIB
     Indication: Metastases to liver
     Dosage: 120 MG, QD
     Route: 048
     Dates: start: 2019, end: 20190919
  3. STIVARGA [Suspect]
     Active Substance: REGORAFENIB
     Indication: Colorectal cancer
     Dosage: 80 MG, QD
     Route: 048
     Dates: start: 20190920, end: 20191228
  4. STIVARGA [Suspect]
     Active Substance: REGORAFENIB
     Indication: Colorectal cancer
     Dosage: 80 MG, QD
     Route: 048
     Dates: start: 202001
  5. CAMRELIZUMAB [Concomitant]
     Active Substance: CAMRELIZUMAB
     Indication: Colorectal cancer
     Dosage: 200 MG, Q3WK
     Route: 041
     Dates: start: 20190920, end: 20191228
  6. CAMRELIZUMAB [Concomitant]
     Active Substance: CAMRELIZUMAB
     Indication: Metastases to liver
     Dosage: 200 MG, Q3WK
     Route: 041
     Dates: start: 202001

REACTIONS (4)
  - Colorectal cancer [None]
  - Metastases to liver [None]
  - Cholecystitis chronic [None]
  - Off label use [None]

NARRATIVE: CASE EVENT DATE: 20190622
